FAERS Safety Report 21764903 (Version 1)
Quarter: 2022Q4

REPORT INFORMATION
  Report Type: Other
  Country: DE (occurrence: None)
  Receive Date: 20221222
  Receipt Date: 20221222
  Transmission Date: 20230113
  Serious: No
  Sender: FDA-Public Use
  Company Number: DE-ROCHE-3248546

PATIENT
  Sex: Female

DRUGS (3)
  1. OCRELIZUMAB [Suspect]
     Active Substance: OCRELIZUMAB
     Indication: Relapsing multiple sclerosis
     Route: 042
     Dates: start: 20190314, end: 20190328
  2. OCRELIZUMAB [Suspect]
     Active Substance: OCRELIZUMAB
     Route: 042
     Dates: start: 20191002
  3. OPIPRAMOL [Concomitant]
     Active Substance: OPIPRAMOL
     Indication: Stress
     Route: 048
     Dates: start: 20210504

REACTIONS (1)
  - Coronavirus infection [Recovered/Resolved]
